FAERS Safety Report 8633496 (Version 4)
Quarter: 2014Q2

REPORT INFORMATION
  Report Type: Spontaneous
  Country: US (occurrence: US)
  Receive Date: 20120625
  Receipt Date: 20140423
  Transmission Date: 20141212
  Serious: Yes (Death)
  Sender: FDA-Public Use
  Company Number: US-JNJFOC-20120610271

PATIENT
  Sex: 0

DRUGS (33)
  1. DOXORUBICIN [Suspect]
     Indication: BURKITT^S LYMPHOMA
     Dosage: ON DAYS 4 AND 5 OF CYCLE 3,5 AND 7
     Route: 042
  2. DOXORUBICIN [Suspect]
     Indication: BURKITT^S LEUKAEMIA
     Dosage: ON DAYS 4 AND 5 OF CYCLE 3,5 AND 7
     Route: 042
  3. CYCLOPHOSPHAMIDE [Suspect]
     Indication: BURKITT^S LYMPHOMA
     Dosage: DAYS 1-5 DURING CYCLE 3,5 AND 7
     Route: 042
  4. CYCLOPHOSPHAMIDE [Suspect]
     Indication: BURKITT^S LYMPHOMA
     Dosage: FOR 5 DAYS IN CYCLE 1
     Route: 042
  5. CYCLOPHOSPHAMIDE [Suspect]
     Indication: BURKITT^S LEUKAEMIA
     Dosage: DAYS 1-5 DURING CYCLE 3,5 AND 7
     Route: 042
  6. CYCLOPHOSPHAMIDE [Suspect]
     Indication: BURKITT^S LEUKAEMIA
     Dosage: FOR 5 DAYS IN CYCLE 1
     Route: 042
  7. PREDNISONE [Suspect]
     Indication: BURKITT^S LYMPHOMA
     Dosage: FOR 7 DAYS IN CYCLE 1
     Route: 065
  8. PREDNISONE [Suspect]
     Indication: BURKITT^S LEUKAEMIA
     Dosage: FOR 7 DAYS IN CYCLE 1
     Route: 065
  9. IFOSFAMIDE [Suspect]
     Indication: BURKITT^S LYMPHOMA
     Dosage: ON DAYS 1-5 IN CYCLE 2,4 AND 6
     Route: 042
  10. IFOSFAMIDE [Suspect]
     Indication: BURKITT^S LEUKAEMIA
     Dosage: ON DAYS 1-5 IN CYCLE 2,4 AND 6
     Route: 042
  11. METHOTREXATE [Suspect]
     Indication: BURKITT^S LYMPHOMA
     Dosage: ON DAY 1 OF CYCLE 3,5 AND 7
     Route: 042
  12. METHOTREXATE [Suspect]
     Indication: BURKITT^S LYMPHOMA
     Dosage: ON DAY 1 OF CYCLE 2,4 AND 6
     Route: 042
  13. METHOTREXATE [Suspect]
     Indication: BURKITT^S LEUKAEMIA
     Dosage: ON DAY 1 OF CYCLE 2,4 AND 6
     Route: 042
  14. METHOTREXATE [Suspect]
     Indication: BURKITT^S LEUKAEMIA
     Dosage: ON DAY 1 OF CYCLE 3,5 AND 7
     Route: 042
  15. VINCRISTINE [Suspect]
     Indication: BURKITT^S LYMPHOMA
     Dosage: ON DAY 1 OF CYCLE 3,5 AND 7
     Route: 042
  16. VINCRISTINE [Suspect]
     Indication: BURKITT^S LYMPHOMA
     Dosage: ON DAY 1 OF CYCLE 2,4 AND 6
     Route: 042
  17. VINCRISTINE [Suspect]
     Indication: BURKITT^S LEUKAEMIA
     Dosage: ON DAY 1 OF CYCLE 2,4 AND 6
     Route: 042
  18. VINCRISTINE [Suspect]
     Indication: BURKITT^S LEUKAEMIA
     Dosage: ON DAY 1 OF CYCLE 3,5 AND 7
     Route: 042
  19. ARA-C [Suspect]
     Indication: BURKITT^S LYMPHOMA
     Dosage: ON DAYS 4 AND 5 OF CYCLE 2,4 AND 6
     Route: 042
  20. ARA-C [Suspect]
     Indication: BURKITT^S LEUKAEMIA
     Dosage: ON DAYS 4 AND 5 OF CYCLE 2,4 AND 6
     Route: 042
  21. VP-16 [Suspect]
     Indication: BURKITT^S LYMPHOMA
     Dosage: ON DAYS 4 AND 5 OF CYCLE 2,4 AND 6
     Route: 042
  22. VP-16 [Suspect]
     Indication: BURKITT^S LEUKAEMIA
     Dosage: ON DAYS 4 AND 5 OF CYCLE 2,4 AND 6
     Route: 042
  23. DEXAMETHASONE [Suspect]
     Indication: BURKITT^S LYMPHOMA
     Dosage: ON DAYS 1-5 OF CYCLE 2,4 AND 6
     Route: 042
  24. DEXAMETHASONE [Suspect]
     Indication: BURKITT^S LYMPHOMA
     Dosage: ON DAYS 1-5 OF CYCLE 3,5 AND 7
     Route: 042
  25. DEXAMETHASONE [Suspect]
     Indication: BURKITT^S LEUKAEMIA
     Dosage: ON DAYS 1-5 OF CYCLE 2,4 AND 6
     Route: 042
  26. DEXAMETHASONE [Suspect]
     Indication: BURKITT^S LEUKAEMIA
     Dosage: ON DAYS 1-5 OF CYCLE 3,5 AND 7
     Route: 042
  27. RITUXIMAB [Suspect]
     Indication: BURKITT^S LYMPHOMA
     Dosage: DAY 8 ON CYCLE 2; DOAGE INCREASED TO 375 MG/M2 ON DAY 10 AND 12
     Route: 042
  28. RITUXIMAB [Suspect]
     Indication: BURKITT^S LYMPHOMA
     Dosage: ON DAY 8 FROM CYCLE 3 TO 7
     Route: 042
  29. RITUXIMAB [Suspect]
     Indication: BURKITT^S LEUKAEMIA
     Dosage: ON DAY 8 FROM CYCLE 3 TO 7
     Route: 042
  30. RITUXIMAB [Suspect]
     Indication: BURKITT^S LEUKAEMIA
     Dosage: DAY 8 ON CYCLE 2; DOAGE INCREASED TO 375 MG/M2 ON DAY 10 AND 12
     Route: 042
  31. LEUCOVORIN [Concomitant]
     Indication: PROPHYLAXIS
     Dosage: 50 MG/M2 36 HOURS AFTER INITIATION OF METHOTREXATE, THEN 10 MG/M2 EVERY 6 H UNTIL LEVEL {0.05 LMOL/L
     Route: 042
  32. LEUCOVORIN [Concomitant]
     Indication: PROPHYLAXIS
     Dosage: 50 MG/M2 36 HOURS AFTER INITIATION OF METHOTREXATE, THEN 10 MG/M2 EVERY 6 H UNTIL LEVEL {0.05 LMOL/L
     Route: 042
  33. FILGRASTIM [Concomitant]
     Indication: PROPHYLAXIS
     Dosage: 5 MICROGRAM/KG/DAY FROM DAY 7 OF EACH CYCLE UNTIL THE ABSOLUTE NEUTROPHIL COUNT HAD RECOVERED
     Route: 058

REACTIONS (1)
  - Central nervous system haemorrhage [Fatal]
